FAERS Safety Report 6253965-X (Version None)
Quarter: 2009Q3

REPORT INFORMATION
  Report Type: 
  Country: None (occurrence: None)
  Receive Date: 20090702
  Receipt Date: 20090626
  Transmission Date: 20100115
  Serious: Yes (Other)
  Sender: FDA-Public Use
  Company Number: US-JNJFOC-20090609274

PATIENT
  Sex: Female

DRUGS (5)
  1. LEVAQUIN [Suspect]
     Indication: SEPSIS
     Route: 042
  2. LEVAQUIN [Suspect]
     Route: 048
  3. LEVAQUIN [Suspect]
     Indication: CYSTITIS
     Route: 048
  4. LANTUS [Concomitant]
     Indication: DIABETES MELLITUS
     Route: 065
  5. GLUCOTROL [Concomitant]
     Indication: DIABETES MELLITUS
     Route: 065

REACTIONS (10)
  - ASTHENIA [None]
  - CARDIAC FAILURE CONGESTIVE [None]
  - CYSTITIS [None]
  - FALL [None]
  - HYPOAESTHESIA [None]
  - OEDEMA PERIPHERAL [None]
  - PAIN IN EXTREMITY [None]
  - PARAESTHESIA [None]
  - TENDONITIS [None]
  - WEIGHT INCREASED [None]
